FAERS Safety Report 9897967 (Version 1)
Quarter: 2014Q1

REPORT INFORMATION
  Report Type: Spontaneous
  Country: DE (occurrence: DE)
  Receive Date: 20140214
  Receipt Date: 20140214
  Transmission Date: 20141002
  Serious: Yes (Other)
  Sender: FDA-Public Use
  Company Number: DE-DRREDDYS-GER/GER/14/0038104

PATIENT
  Age: 35 Year
  Sex: Female
  Weight: 107 kg

DRUGS (3)
  1. LAMOTRIGINE [Suspect]
     Indication: JUVENILE MYOCLONIC EPILEPSY
     Route: 048
     Dates: start: 20111231
  2. LAMOTRIGINE [Suspect]
     Route: 048
  3. LAMOTRIGINE [Suspect]
     Route: 048
     Dates: end: 20120828

REACTIONS (3)
  - Premature delivery [Unknown]
  - Caesarean section [Unknown]
  - Exposure during pregnancy [Unknown]
